FAERS Safety Report 15143248 (Version 1)
Quarter: 2018Q3

REPORT INFORMATION
  Report Type: Spontaneous
  Country: US (occurrence: US)
  Receive Date: 20180713
  Receipt Date: 20180713
  Transmission Date: 20181010
  Serious: Yes (Other)
  Sender: FDA-Public Use
  Company Number: US-PROCTER+GAMBLE-GS18065742

PATIENT
  Age: 54 Year
  Sex: Female
  Weight: 50.79 kg

DRUGS (2)
  1. ASPARTAME [Suspect]
     Active Substance: ASPARTAME
     Route: 048
  2. METAMUCIL THERAPY FOR REGULARITY [Suspect]
     Active Substance: PSYLLIUM HUSK
     Indication: CONSTIPATION
     Dosage: 1 TSP, 1 /DAY AT NIGHT
     Route: 048
     Dates: end: 20180513

REACTIONS (15)
  - Hypoacusis [Not Recovered/Not Resolved]
  - Coma [Not Recovered/Not Resolved]
  - Neuralgia [Not Recovered/Not Resolved]
  - Sensory disturbance [Not Recovered/Not Resolved]
  - Panic attack [Not Recovered/Not Resolved]
  - Reaction to food additive [Not Recovered/Not Resolved]
  - Palpitations [Recovering/Resolving]
  - Seizure [Not Recovered/Not Resolved]
  - Confusional state [Not Recovered/Not Resolved]
  - Paraesthesia [Not Recovered/Not Resolved]
  - Dyspnoea [Not Recovered/Not Resolved]
  - Anxiety [Not Recovered/Not Resolved]
  - Vision blurred [Not Recovered/Not Resolved]
  - Heart rate increased [Not Recovered/Not Resolved]
  - Peripheral coldness [Recovered/Resolved]

NARRATIVE: CASE EVENT DATE: 20180513
